FAERS Safety Report 6241620-1 (Version None)
Quarter: 2009Q2

REPORT INFORMATION
  Report Type: 
  Country: None (occurrence: None)
  Receive Date: 20090623
  Receipt Date: 20040718
  Transmission Date: 20091009
  Serious: Yes (Hospitalization)
  Sender: FDA-Public Use
  Company Number: CZ-ROCHE-411508

PATIENT
  Sex: Male
  Weight: 60.5 kg

DRUGS (45)
  1. DACLIZUMAB [Suspect]
     Dosage: BASELINE VISIT
     Route: 042
     Dates: start: 20040506, end: 20040506
  2. DACLIZUMAB [Suspect]
     Dosage: WEEK 2 AND 4 VISIT
     Route: 042
     Dates: start: 20040520
  3. DACLIZUMAB [Suspect]
     Dosage: WEEK 6 AND 8 VISIT
     Route: 042
     Dates: start: 20040621
  4. MYCOPHENOLATE MOFETIL [Suspect]
     Dosage: DRUG: MYCOPHENOLATUM MOFETIL
     Route: 048
     Dates: start: 20040506
  5. MYCOPHENOLATE MOFETIL [Suspect]
     Route: 048
     Dates: start: 20040616
  6. MYCOPHENOLATE MOFETIL [Suspect]
     Route: 048
     Dates: start: 20040629
  7. MYCOPHENOLATE MOFETIL [Suspect]
     Route: 048
     Dates: start: 20040630
  8. MYCOPHENOLATE MOFETIL [Suspect]
     Route: 048
     Dates: start: 20041104
  9. MYCOPHENOLATE MOFETIL [Suspect]
     Route: 048
     Dates: start: 20050210
  10. CYCLOSPORINE [Suspect]
     Dosage: DRUG: CICLOSPORINUM
     Route: 048
     Dates: start: 20040506
  11. CYCLOSPORINE [Suspect]
     Route: 048
     Dates: start: 20040810
  12. CYCLOSPORINE [Suspect]
     Route: 048
     Dates: start: 20050409
  13. CYCLOSPORINE [Suspect]
     Route: 048
     Dates: start: 20060830
  14. PREDNISONUM [Suspect]
     Route: 048
     Dates: start: 20040508
  15. PREDNISONUM [Suspect]
     Route: 048
     Dates: start: 20040805
  16. PREDNISONUM [Suspect]
     Route: 048
     Dates: start: 20050210
  17. SULFAMETHOXAZOLE AND TRIMETHOPRIM [Concomitant]
     Route: 048
     Dates: start: 20040513, end: 20040806
  18. SULFAMETHOXAZOLE AND TRIMETHOPRIM [Concomitant]
     Route: 048
     Dates: start: 20040823, end: 20041103
  19. FAMOTIDIN [Concomitant]
     Route: 048
     Dates: start: 20040507
  20. AMLODIPINI BESILAS [Concomitant]
     Route: 048
     Dates: start: 20040507, end: 20040526
  21. AMLODIPINI BESILAS [Concomitant]
     Route: 048
     Dates: start: 20040817
  22. AMLODIPINI BESILAS [Concomitant]
     Route: 048
     Dates: start: 20040827
  23. AMLODIPINI BESILAS [Concomitant]
     Route: 048
     Dates: start: 20050309
  24. DOXAZOSIN MESILATE [Concomitant]
     Dosage: DRUG: DOXASOSINI MESILAS
     Route: 048
     Dates: start: 20040511
  25. DOXAZOSIN MESILATE [Concomitant]
     Route: 048
     Dates: start: 20040628
  26. DOXAZOSIN MESILATE [Concomitant]
     Route: 048
     Dates: start: 20050309
  27. METOPROLOL TARTRATE [Concomitant]
     Dosage: DRUG: METOPROLOLI TARTRAS
     Route: 048
     Dates: start: 20040506
  28. METOPROLOL TARTRATE [Concomitant]
     Route: 048
     Dates: start: 20040526
  29. METOPROLOL TARTRATE [Concomitant]
     Route: 048
     Dates: start: 20050507
  30. AMOXICILLIN TRIHYDRATE [Concomitant]
     Dosage: DRUG: AMOXICILLINUM TRIHYDRICUM
     Route: 048
     Dates: start: 20040601, end: 20040609
  31. AMOXICILLIN TRIHYDRATE [Concomitant]
     Route: 048
     Dates: start: 20040714, end: 20040728
  32. AMOXICILLIN TRIHYDRATE [Concomitant]
     Route: 048
     Dates: start: 20050906, end: 20050916
  33. AMPICILLIN-NATRIUM [Concomitant]
     Dosage: DRUG: AMPICILLINUM NATRICUM
     Route: 042
     Dates: start: 20040616, end: 20040616
  34. AMPICILLIN-NATRIUM [Concomitant]
     Dosage: DRUG: AMPICILLINUM NATRICUM
     Route: 048
     Dates: start: 20040617, end: 20040617
  35. CEFEPIME HYDROCHLORIDE [Concomitant]
     Dosage: DRUG: CEFEPIMI DIHYDROCHLORIDUM MONOHYDRICUM
     Route: 042
     Dates: start: 20040619, end: 20040704
  36. CEFOTAXIMUM [Concomitant]
     Dosage: DRUG: CEFOTAXIMUM NATRICUM
     Route: 042
     Dates: start: 20040521, end: 20040521
  37. CEFOTAXIMUM [Concomitant]
     Route: 042
     Dates: start: 20040525, end: 20040527
  38. CEFUROXIMUM [Concomitant]
     Dosage: DRUG REPORTED: CEFUROXIMUM AXETILI
     Route: 042
     Dates: start: 20040617, end: 20040620
  39. CIPROFLOXACIN [Concomitant]
     Dosage: DRUG: CIPROFLOXACINI
     Route: 042
     Dates: start: 20040506, end: 20040509
  40. CIPROFLOXACIN [Concomitant]
     Dosage: DRUG: CIPROFLOXACINI
     Route: 048
     Dates: start: 20040510, end: 20040511
  41. CIPROFLOXACIN [Concomitant]
     Route: 048
     Dates: start: 20040627, end: 20040713
  42. METHYLPREDNISOLONE [Suspect]
     Dosage: DRUG: METHYLPREDNISOLONI NATRII SUCCINAS
     Route: 042
     Dates: start: 20040506, end: 20040508
  43. NORFLOXACIN [Concomitant]
     Dosage: DRUG: NORFLOXACINUM
     Route: 048
     Dates: start: 20040728, end: 20040806
  44. NORFLOXACIN [Concomitant]
     Route: 048
     Dates: start: 20050309
  45. PRAZOSINI HYDROCHLORIDUM [Concomitant]
     Dosage: DRUG: PRASOSINI HYDROCHLORIDUM
     Route: 048
     Dates: start: 20040507, end: 20040507

REACTIONS (3)
  - BLOOD CREATININE INCREASED [None]
  - URETHRAL FISTULA [None]
  - URINARY TRACT INFECTION [None]
